FAERS Safety Report 21686745 (Version 1)
Quarter: 2022Q4

REPORT INFORMATION
  Report Type: Report from Study
  Country: US (occurrence: CA)
  Receive Date: 20221206
  Receipt Date: 20221206
  Transmission Date: 20230112
  Serious: Yes (Other)
  Sender: FDA-Public Use
  Company Number: US-TAKEDA-2022TUS092134

PATIENT
  Age: 51 Year
  Sex: Female
  Weight: 79.3 kg

DRUGS (3)
  1. HUMAN IMMUNOGLOBULIN G [Suspect]
     Active Substance: HUMAN IMMUNOGLOBULIN G
     Indication: Primary immunodeficiency syndrome
     Dosage: 120 GRAM, MONTHLY
     Route: 058
     Dates: start: 20200709
  2. HUMAN IMMUNOGLOBULIN G [Suspect]
     Active Substance: HUMAN IMMUNOGLOBULIN G
     Indication: Immunomodulatory therapy
     Dosage: 30 GRAM, 1/WEEK
     Route: 058
  3. HIZENTRA [Concomitant]
     Active Substance: HUMAN IMMUNOGLOBULIN G
     Dosage: 50 MILLIGRAM

REACTIONS (5)
  - COVID-19 pneumonia [Unknown]
  - Urticaria chronic [Unknown]
  - Acute sinusitis [Recovering/Resolving]
  - Asthma [Unknown]
  - Lung opacity [Unknown]

NARRATIVE: CASE EVENT DATE: 20220301
